FAERS Safety Report 9768882 (Version 1)
Quarter: 2013Q3

REPORT INFORMATION
  Report Type: Spontaneous
  Country: US (occurrence: None)
  Receive Date: 20130903
  Receipt Date: 20130903
  Transmission Date: 20140515
  Serious: Yes (Hospitalization)
  Sender: FDA-Public Use
  Company Number: 90282

PATIENT
  Age: 52 Year
  Sex: Male

DRUGS (1)
  1. LEUCOVORIN CALCIUM FOR INJ. 50MG - BEDFORD LABS, INC. [Suspect]
     Indication: NEOPLASM MALIGNANT
     Route: 042
     Dates: start: 20090618

REACTIONS (3)
  - Pyrexia [None]
  - Diarrhoea [None]
  - Escherichia bacteraemia [None]
